FAERS Safety Report 21920059 (Version 3)
Quarter: 2023Q2

REPORT INFORMATION
  Report Type: Report from Study
  Country: US (occurrence: US)
  Receive Date: 20230127
  Receipt Date: 20230608
  Transmission Date: 20230722
  Serious: Yes (Death, Other)
  Sender: FDA-Public Use
  Company Number: US-GILEAD-2023-0614267

PATIENT
  Sex: Female

DRUGS (2)
  1. AMBRISENTAN [Suspect]
     Active Substance: AMBRISENTAN
     Indication: Pulmonary arterial hypertension
     Dosage: 10 MG, QD
     Route: 065
     Dates: start: 20160805
  2. ADCIRCA [Concomitant]
     Active Substance: TADALAFIL

REACTIONS (11)
  - Myocardial infarction [Fatal]
  - Interstitial lung disease [Unknown]
  - Cardiac failure [Unknown]
  - Back pain [Unknown]
  - Pain [Unknown]
  - Rhinorrhoea [Unknown]
  - Productive cough [Unknown]
  - Sneezing [Unknown]
  - Epistaxis [Unknown]
  - Anaemia [Unknown]
  - Oxygen saturation decreased [Unknown]
